FAERS Safety Report 21964760 (Version 2)
Quarter: 2023Q1

REPORT INFORMATION
  Report Type: Spontaneous
  Country: IT (occurrence: IT)
  Receive Date: 20230207
  Receipt Date: 20230306
  Transmission Date: 20230417
  Serious: Yes (Hospitalization, Other)
  Sender: FDA-Public Use
  Company Number: IT-009507513-2302ITA001588

PATIENT
  Age: 77 Year
  Sex: Male

DRUGS (2)
  1. PEMBROLIZUMAB [Suspect]
     Active Substance: PEMBROLIZUMAB
     Dosage: 200 MILLIGRAM, Q3W
     Route: 042
     Dates: start: 20181005, end: 20190704
  2. PEMBROLIZUMAB [Suspect]
     Active Substance: PEMBROLIZUMAB
     Dosage: 200 MILLIGRAM, Q3W
     Route: 042
     Dates: start: 20220406

REACTIONS (12)
  - Pulmonary toxicity [Recovered/Resolved]
  - Malignant neoplasm progression [Unknown]
  - Femur fracture [Unknown]
  - Polymyalgia rheumatica [Recovered/Resolved]
  - Hyperpyrexia [Unknown]
  - Synovitis [Recovered/Resolved]
  - Joint stiffness [Recovered/Resolved]
  - Muscular weakness [Recovered/Resolved]
  - Procedural pain [Unknown]
  - Staphylococcal abscess [Unknown]
  - Pancreatic cystadenoma [Unknown]
  - Post procedural complication [Unknown]

NARRATIVE: CASE EVENT DATE: 20181205
